FAERS Safety Report 6962070-6 (Version None)
Quarter: 2010Q3

REPORT INFORMATION
  Report Type: 
  Country: None (occurrence: None)
  Receive Date: 20100901
  Receipt Date: 20100901
  Transmission Date: 20110219
  Serious: No
  Sender: FDA-Public Use
  Company Number: None

PATIENT
  Sex: Female

DRUGS (1)
  1. HYDROCODONE BITARTRATE + ACETAMINOPHEN [Suspect]
     Indication: INTERVERTEBRAL DISC DISORDER
     Dosage: 7.5/750MG ONE UP TO 5 A DAY
     Dates: start: 20100601

REACTIONS (2)
  - NAUSEA [None]
  - VOMITING [None]
